FAERS Safety Report 14956389 (Version 1)
Quarter: 2018Q2

REPORT INFORMATION
  Report Type: Spontaneous
  Country: US (occurrence: US)
  Receive Date: 20180531
  Receipt Date: 20180531
  Transmission Date: 20180711
  Serious: No
  Sender: FDA-Public Use
  Company Number: US-PFIZER INC-2018218895

PATIENT
  Age: 73 Year
  Sex: Female
  Weight: 50 kg

DRUGS (1)
  1. IBRANCE [Suspect]
     Active Substance: PALBOCICLIB
     Indication: METASTASES TO LIVER
     Dosage: 125 MG, CYCLIC (ONCE DAILY)
     Route: 048
     Dates: start: 201804

REACTIONS (3)
  - Dizziness [Unknown]
  - Neutrophil count decreased [Unknown]
  - Vertigo [Unknown]

NARRATIVE: CASE EVENT DATE: 2018
